FAERS Safety Report 13890832 (Version 1)
Quarter: 2017Q3

REPORT INFORMATION
  Report Type: Spontaneous
  Country: US (occurrence: US)
  Receive Date: 20170822
  Receipt Date: 20170822
  Transmission Date: 20171127
  Serious: Yes (Other)
  Sender: FDA-Public Use
  Company Number: US-CONCORDIA PHARMACEUTICALS INC.-GSH201708-004761

PATIENT
  Age: 65 Year
  Sex: Male

DRUGS (47)
  1. XELJANZ [Suspect]
     Active Substance: TOFACITINIB CITRATE
     Indication: RHEUMATOID ARTHRITIS
     Route: 065
  2. CIMZIA [Suspect]
     Active Substance: CERTOLIZUMAB PEGOL
     Indication: RHEUMATOID ARTHRITIS
     Route: 065
     Dates: start: 201306, end: 201308
  3. ACTEMRA [Suspect]
     Active Substance: TOCILIZUMAB
     Indication: RHEUMATOID ARTHRITIS
     Route: 065
     Dates: start: 201209, end: 201305
  4. ABILIFY [Concomitant]
     Active Substance: ARIPIPRAZOLE
  5. CYTOMEL [Concomitant]
     Active Substance: LIOTHYRONINE SODIUM
  6. DULOXETINE HYDROCHLORIDE. [Concomitant]
     Active Substance: DULOXETINE HYDROCHLORIDE
  7. PROCHLORPERAZINE MALEATE. [Concomitant]
     Active Substance: PROCHLORPERAZINE MALEATE
  8. TOPIRAMATE. [Concomitant]
     Active Substance: TOPIRAMATE
  9. HYDROCHLOROTHIAZIDE/TRIAMTERENE [Concomitant]
     Active Substance: HYDROCHLOROTHIAZIDE\TRIAMTERENE
  10. ADVAIR HFA [Concomitant]
     Active Substance: FLUTICASONE PROPIONATE\SALMETEROL XINAFOATE
  11. CRESTOR [Concomitant]
     Active Substance: ROSUVASTATIN CALCIUM
  12. DUONEB [Concomitant]
     Active Substance: ALBUTEROL SULFATE\IPRATROPIUM BROMIDE
  13. SOMA [Concomitant]
     Active Substance: CARISOPRODOL
  14. SULFASALAZINE. [Concomitant]
     Active Substance: SULFASALAZINE
  15. TAMSULOSIN HYDROCHLORIDE. [Concomitant]
     Active Substance: TAMSULOSIN HYDROCHLORIDE
  16. ENBREL [Suspect]
     Active Substance: ETANERCEPT
     Indication: RHEUMATOID ARTHRITIS
     Route: 065
  17. PROLIA [Suspect]
     Active Substance: DENOSUMAB
     Indication: OSTEOPENIA
     Route: 065
  18. OMEGA 3 [Concomitant]
     Active Substance: OMEGA-3 FATTY ACIDS
  19. SYNTHROID [Concomitant]
     Active Substance: LEVOTHYROXINE SODIUM
  20. REMICADE [Suspect]
     Active Substance: INFLIXIMAB
     Indication: RHEUMATOID ARTHRITIS
     Route: 065
  21. HUMIRA [Suspect]
     Active Substance: ADALIMUMAB
     Indication: SPONDYLOARTHROPATHY
     Route: 065
     Dates: start: 201512, end: 201603
  22. HUMIRA [Suspect]
     Active Substance: ADALIMUMAB
     Indication: RHEUMATOID ARTHRITIS
  23. LOVAZA [Concomitant]
     Active Substance: OMEGA-3-ACID ETHYL ESTERS
  24. RELPAX [Concomitant]
     Active Substance: ELETRIPTAN HYDROBROMIDE
  25. TOPAMAX [Concomitant]
     Active Substance: TOPIRAMATE
  26. XALATAN [Concomitant]
     Active Substance: LATANOPROST
  27. ENBREL [Suspect]
     Active Substance: ETANERCEPT
     Indication: SPONDYLOARTHROPATHY
  28. FINASTERIDE. [Concomitant]
     Active Substance: FINASTERIDE
  29. MYRBETRIQ [Concomitant]
     Active Substance: MIRABEGRON
  30. OXYCODONE HYDROCHLORIDE. [Concomitant]
     Active Substance: OXYCODONE HYDROCHLORIDE
  31. PLAQUENIL [Suspect]
     Active Substance: HYDROXYCHLOROQUINE SULFATE
     Indication: RHEUMATOID ARTHRITIS
     Route: 065
  32. ARAVA [Suspect]
     Active Substance: LEFLUNOMIDE
     Indication: RHEUMATOID ARTHRITIS
     Route: 048
  33. ATENOLOL. [Concomitant]
     Active Substance: ATENOLOL
  34. ACETYLSALICYLIC ACID [Concomitant]
     Active Substance: ASPIRIN
  35. DORZOLAMIDE HYDROCHLORIDE. [Concomitant]
     Active Substance: DORZOLAMIDE HYDROCHLORIDE
  36. NEXIUM [Concomitant]
     Active Substance: ESOMEPRAZOLE MAGNESIUM
  37. SINGULAIR [Concomitant]
     Active Substance: MONTELUKAST SODIUM
  38. ARANESP [Concomitant]
     Active Substance: DARBEPOETIN ALFA
  39. METHOTREXATE SODIUM. [Suspect]
     Active Substance: METHOTREXATE SODIUM
     Indication: RHEUMATOID ARTHRITIS
     Route: 065
  40. ORENCIA [Suspect]
     Active Substance: ABATACEPT
     Indication: RHEUMATOID ARTHRITIS
     Route: 065
  41. FUROSEMIDE. [Concomitant]
     Active Substance: FUROSEMIDE
  42. FAMOTIDINE. [Concomitant]
     Active Substance: FAMOTIDINE
  43. GABAPENTIN. [Concomitant]
     Active Substance: GABAPENTIN
  44. MEDROL [Concomitant]
     Active Substance: METHYLPREDNISOLONE
  45. OXYCODONE [Concomitant]
     Active Substance: OXYCODONE
  46. VOLTAREN [Concomitant]
     Active Substance: DICLOFENAC SODIUM
  47. ZYRTEC [Concomitant]
     Active Substance: CETIRIZINE HYDROCHLORIDE

REACTIONS (18)
  - Immunoglobulins decreased [Unknown]
  - Anaemia of chronic disease [Not Recovered/Not Resolved]
  - Pain [Not Recovered/Not Resolved]
  - Fall [Unknown]
  - Gait disturbance [Unknown]
  - Essential hypertension [Not Recovered/Not Resolved]
  - Osteopenia [Not Recovered/Not Resolved]
  - Insomnia [Recovering/Resolving]
  - Treatment failure [Unknown]
  - Type V hyperlipidaemia [Not Recovered/Not Resolved]
  - Off label use [Unknown]
  - Synovitis [Not Recovered/Not Resolved]
  - Spondyloarthropathy [Not Recovered/Not Resolved]
  - Rheumatoid arthritis [Not Recovered/Not Resolved]
  - Fibromyalgia [Not Recovered/Not Resolved]
  - Blood thyroid stimulating hormone decreased [Unknown]
  - Blood prolactin decreased [Unknown]
  - Osteoarthritis [Not Recovered/Not Resolved]

NARRATIVE: CASE EVENT DATE: 201211
